FAERS Safety Report 25810911 (Version 2)
Quarter: 2025Q4

REPORT INFORMATION
  Report Type: Spontaneous
  Country: EU (occurrence: EU)
  Receive Date: 20250917
  Receipt Date: 20251009
  Transmission Date: 20260118
  Serious: Yes (Life-Threatening, Other)
  Sender: ALKEM
  Company Number: EU-ALKEM LABORATORIES LIMITED-DE-ALKEM-2025-09821

PATIENT
  Age: 52 Year
  Sex: Female

DRUGS (4)
  1. CEFUROXIME AXETIL [Suspect]
     Active Substance: CEFUROXIME AXETIL
     Indication: Infection
     Dosage: UNK
     Route: 042
     Dates: start: 20250812
  2. IBUPROFEN [Concomitant]
     Active Substance: IBUPROFEN
     Indication: Amputation
     Dosage: 1800 MILLIGRAM, QD
     Route: 048
     Dates: start: 20250728, end: 20250812
  3. PANTOPRAZOLE SODIUM [Concomitant]
     Active Substance: PANTOPRAZOLE SODIUM
     Indication: Amputation
     Dosage: 20 MILLIGRAM, QD
     Route: 048
     Dates: start: 20250728, end: 20250812
  4. TINZAPARIN [Concomitant]
     Active Substance: TINZAPARIN
     Indication: Amputation
     Dosage: 4500 INTERNATIONAL UNIT, QD
     Route: 058
     Dates: start: 20250728

REACTIONS (1)
  - Anaphylactic shock [Recovered/Resolved]

NARRATIVE: CASE EVENT DATE: 20250812
